FAERS Safety Report 5356933-5 (Version None)
Quarter: 2007Q2

REPORT INFORMATION
  Report Type: 
  Country: None (occurrence: None)
  Receive Date: 20070530
  Receipt Date: 20070314
  Transmission Date: 20071010
  Serious: Yes (Hospitalization, Other)
  Sender: FDA-Public Use
  Company Number: US200701004307

PATIENT
  Age: 28 Year
  Sex: Female
  Weight: 75.3 kg

DRUGS (1)
  1. ZYPREXA [Suspect]
     Dates: start: 20020101, end: 20030101

REACTIONS (3)
  - DIABETES MELLITUS [None]
  - HYPOGLYCAEMIA [None]
  - PANCREATITIS [None]
